FAERS Safety Report 21961822 (Version 3)
Quarter: 2023Q1

REPORT INFORMATION
  Report Type: Report from Study
  Country: CO (occurrence: CO)
  Receive Date: 20230207
  Receipt Date: 20230216
  Transmission Date: 20230417
  Serious: Yes (Hospitalization, Other)
  Sender: FDA-Public Use
  Company Number: CO-UCBSA-2022064065

PATIENT
  Age: 15 Year
  Sex: Male

DRUGS (4)
  1. LACOSAMIDE [Suspect]
     Active Substance: LACOSAMIDE
     Indication: Epilepsy
     Dosage: 6 MILLILITER, 2X/DAY (BID)
     Route: 048
     Dates: start: 20221011, end: 20221021
  2. LACOSAMIDE [Suspect]
     Active Substance: LACOSAMIDE
     Dosage: 6 CC EVERY 12 HOURS
     Route: 048
     Dates: end: 20221119
  3. LACOSAMIDE [Suspect]
     Active Substance: LACOSAMIDE
     Dosage: 6 CC EVERY 12 HOURS
     Route: 048
     Dates: start: 20221011, end: 20221020
  4. CLOBAZAM [Concomitant]
     Active Substance: CLOBAZAM
     Indication: Epilepsy
     Dosage: 20 MILLIGRAM, 2X/DAY (BID)
     Route: 048

REACTIONS (7)
  - Generalised tonic-clonic seizure [Recovering/Resolving]
  - Seizure [Recovered/Resolved]
  - Pyrexia [Recovered/Resolved]
  - Hallucination [Unknown]
  - Tachycardia [Recovered/Resolved]
  - Therapy interrupted [Unknown]
  - Stress [Unknown]

NARRATIVE: CASE EVENT DATE: 20221020
